FAERS Safety Report 20493795 (Version 1)
Quarter: 2022Q1

REPORT INFORMATION
  Report Type: Spontaneous
  Country: US (occurrence: US)
  Receive Date: 20220221
  Receipt Date: 20220221
  Transmission Date: 20220424
  Serious: Yes (Other)
  Sender: FDA-Public Use
  Company Number: US-LUPIN PHARMACEUTICALS INC.-2022-02195

PATIENT
  Age: 43 Year

DRUGS (2)
  1. TESTOSTERONE [Suspect]
     Active Substance: TESTOSTERONE
     Indication: Transgender hormonal therapy
     Dosage: 100 MG, WEEKLY, INJECTION
     Route: 065
     Dates: start: 200904
  2. TESTOSTERONE [Suspect]
     Active Substance: TESTOSTERONE
     Dosage: 120 MG
     Route: 065

REACTIONS (4)
  - Granuloma [Recovering/Resolving]
  - Vocal cord disorder [Recovering/Resolving]
  - Vocal cord atrophy [Recovering/Resolving]
  - Laryngeal atrophy [Recovering/Resolving]
